FAERS Safety Report 8808177 (Version 1)
Quarter: 2012Q4

REPORT INFORMATION
  Report Type: 
  Country: US (occurrence: US)
  Receive Date: 20120925
  Receipt Date: 20120925
  Transmission Date: 20130627
  Serious: No
  Sender: FDA-Public Use
  Company Number: US-ASTRAZENECA-2012SE70130

PATIENT
  Age: 76 Year
  Sex: Female
  Weight: 74.8 kg

DRUGS (3)
  1. NEXIUM [Suspect]
     Indication: BARRETT^S OESOPHAGUS
     Route: 048
  2. NEXIUM [Suspect]
     Indication: BARRETT^S OESOPHAGUS
     Route: 048
  3. METOPROL [Suspect]
     Route: 048

REACTIONS (6)
  - Adverse event [Unknown]
  - Dysplasia [Unknown]
  - Ulcer [Unknown]
  - Hypertension [Unknown]
  - Off label use [Unknown]
  - Drug dose omission [Unknown]
